FAERS Safety Report 7019248-5 (Version None)
Quarter: 2010Q3

REPORT INFORMATION
  Report Type: 
  Country: None (occurrence: None)
  Receive Date: 20100928
  Receipt Date: 20100924
  Transmission Date: 20110219
  Serious: Yes (Hospitalization)
  Sender: FDA-Public Use
  Company Number: US-GILEAD-2010-0032073

PATIENT
  Age: 76 Year
  Sex: Female

DRUGS (13)
  1. LETAIRIS [Suspect]
     Indication: PULMONARY ARTERIAL HYPERTENSION
     Route: 048
     Dates: start: 20090929
  2. SOTALOL [Concomitant]
  3. NITROGLYCERIN [Concomitant]
  4. SIMVASTATIN [Concomitant]
  5. BENICAR HCT [Concomitant]
  6. GLUCOSAMI/CHONDROT [Concomitant]
  7. VITAMIN K TAB [Concomitant]
  8. LUTEIN [Concomitant]
  9. LOVAZA [Concomitant]
  10. VITAMIN D [Concomitant]
  11. CALCIUM MAG [Concomitant]
  12. ASCORBIC ACID [Concomitant]
  13. PREMARIN [Concomitant]

REACTIONS (1)
  - VERTIGO [None]
